FAERS Safety Report 12630880 (Version 4)
Quarter: 2017Q4

REPORT INFORMATION
  Report Type: Spontaneous
  Country: US (occurrence: US)
  Receive Date: 20160808
  Receipt Date: 20171107
  Transmission Date: 20180320
  Serious: Yes (Hospitalization)
  Sender: FDA-Public Use
  Company Number: US-PFIZER INC-2016372555

PATIENT
  Age: 62 Year
  Sex: Female

DRUGS (2)
  1. IBRANCE [Suspect]
     Active Substance: PALBOCICLIB
     Indication: BREAST CANCER FEMALE
     Dosage: 125 MG, CYCLIC (1 CAPSULE DAILY ON DAYS 1-21 AND 7 DAYS OFF)
     Route: 048
     Dates: start: 201607
  2. LETROZOLE. [Suspect]
     Active Substance: LETROZOLE
     Dosage: UNK

REACTIONS (10)
  - Pruritus [Unknown]
  - Stomatitis [Unknown]
  - Headache [Not Recovered/Not Resolved]
  - Influenza like illness [Unknown]
  - Diarrhoea [Unknown]
  - Vomiting [Unknown]
  - Pancreatitis [Unknown]
  - Neoplasm progression [Unknown]
  - Nausea [Unknown]
  - Alopecia [Unknown]

NARRATIVE: CASE EVENT DATE: 201701
